FAERS Safety Report 7009156-8 (Version None)
Quarter: 2010Q3

REPORT INFORMATION
  Report Type: 
  Country: None (occurrence: None)
  Receive Date: 20100923
  Receipt Date: 20100914
  Transmission Date: 20110219
  Serious: Yes (Hospitalization)
  Sender: FDA-Public Use
  Company Number: US-JNJFOC-20100904876

PATIENT
  Sex: Female
  Weight: 65.77 kg

DRUGS (13)
  1. FENTANYL CITRATE [Suspect]
     Indication: BACK PAIN
     Route: 062
  2. FENTANYL CITRATE [Suspect]
     Dosage: NDC#0781-7244-55
     Route: 062
  3. HEART MEDICATION (UNKNOWN) [Suspect]
     Indication: MYOCARDIAL INFARCTION
     Route: 048
  4. CHANTIX [Suspect]
     Indication: SMOKING CESSATION THERAPY
     Route: 048
  5. CRESTOR [Concomitant]
     Indication: BLOOD CHOLESTEROL INCREASED
     Route: 048
  6. METOPROLOL [Concomitant]
     Indication: HYPERTENSION
     Route: 048
  7. METOPROLOL [Concomitant]
     Route: 048
  8. IMDUR [Concomitant]
     Indication: HYPERTENSION
     Route: 048
  9. IMDUR [Concomitant]
     Dosage: 90 MG/TABLETS/30 MG
     Route: 048
  10. IMDUR [Concomitant]
     Dosage: 90 MG/TABLETS/60 MG
     Route: 048
  11. LASIX [Concomitant]
     Indication: CARDIAC FAILURE CONGESTIVE
     Route: 048
  12. LASIX [Concomitant]
     Route: 048
  13. POTASSIUM [Concomitant]
     Indication: ELECTROLYTE SUBSTITUTION THERAPY
     Route: 048

REACTIONS (6)
  - MYOCARDIAL INFARCTION [None]
  - NAUSEA [None]
  - PRODUCT ADHESION ISSUE [None]
  - PRURITUS GENERALISED [None]
  - THERMAL BURN [None]
  - WRONG TECHNIQUE IN DRUG USAGE PROCESS [None]
